FAERS Safety Report 25206927 (Version 1)
Quarter: 2025Q2

REPORT INFORMATION
  Report Type: Other
  Country: IT (occurrence: IT)
  Receive Date: 20250417
  Receipt Date: 20250417
  Transmission Date: 20250716
  Serious: Yes (Hospitalization, Other)
  Sender: MACLEODS
  Company Number: IT-MINISAL02-481674

PATIENT

DRUGS (2)
  1. LEVOFLOXACIN [Suspect]
     Active Substance: LEVOFLOXACIN
     Indication: Bronchitis
     Dosage: 500 MILLIGRAM, QD, OVERDOSE, MEDICATION ERROR, MISUSE, ABUSE
     Route: 048
     Dates: start: 20180522, end: 20180526
  2. WARFARIN [Suspect]
     Active Substance: WARFARIN
     Indication: Product used for unknown indication
     Route: 065

REACTIONS (8)
  - International normalised ratio increased [Recovering/Resolving]
  - Agitation [Recovering/Resolving]
  - Acute kidney injury [Recovering/Resolving]
  - Abdominal pain upper [Unknown]
  - Drug interaction [Unknown]
  - Drug abuse [Unknown]
  - Overdose [Unknown]
  - Medication error [Unknown]

NARRATIVE: CASE EVENT DATE: 20180101
